FAERS Safety Report 9581491 (Version 2)
Quarter: 2013Q4

REPORT INFORMATION
  Report Type: Spontaneous
  Country: US (occurrence: US)
  Receive Date: 20131002
  Receipt Date: 20131231
  Transmission Date: 20140711
  Serious: Yes (Other)
  Sender: FDA-Public Use
  Company Number: PHEH2013US020387

PATIENT
  Sex: Male

DRUGS (3)
  1. DIOVAN [Suspect]
     Dosage: 320 MG, QD
     Route: 048
  2. CRESTOR [Concomitant]
  3. BABY ASPIRIN [Concomitant]

REACTIONS (1)
  - Prostatomegaly [Unknown]
